FAERS Safety Report 25960437 (Version 1)
Quarter: 2025Q4

REPORT INFORMATION
  Report Type: Spontaneous
  Country: US (occurrence: US)
  Receive Date: 20251027
  Receipt Date: 20251027
  Transmission Date: 20260119
  Serious: Yes (Other)
  Sender: AMGEN
  Company Number: US-AMGEN-USASP2025208889

PATIENT

DRUGS (2)
  1. ADALIMUMAB [Suspect]
     Active Substance: ADALIMUMAB
     Indication: Colitis ulcerative
     Dosage: UNK
     Route: 065
  2. INFLIXIMAB [Suspect]
     Active Substance: INFLIXIMAB
     Indication: Colitis ulcerative
     Dosage: UNK
     Route: 065

REACTIONS (10)
  - Meningitis [Unknown]
  - Clostridium difficile infection [Unknown]
  - Sepsis [Unknown]
  - Pyelonephritis [Unknown]
  - Pneumonia [Unknown]
  - Diarrhoea infectious [Unknown]
  - Infection [Unknown]
  - Urinary tract infection [Unknown]
  - Cellulitis [Unknown]
  - Herpes zoster [Unknown]
